FAERS Safety Report 5197264-6 (Version None)
Quarter: 2006Q4

REPORT INFORMATION
  Report Type: 
  Country: None (occurrence: None)
  Receive Date: 20061228
  Receipt Date: 20061220
  Transmission Date: 20070319
  Serious: Yes (Other)
  Sender: FDA-Public Use
  Company Number: 2006-06301

PATIENT
  Age: 86 Year
  Sex: Male

DRUGS (3)
  1. DIPYRIDAMOLE (WATSON LABORATORIES) TABLET, 50MG [Suspect]
     Indication: TRANSIENT ISCHAEMIC ATTACK
     Dosage: WATSON LABORATORIES
  2. PIROXICAM (WATSON LABORATORIES) CAPSULE [Suspect]
  3. ASPIRIN [Suspect]

REACTIONS (2)
  - DRUG INTERACTION POTENTIATION [None]
  - VITREOUS HAEMORRHAGE [None]
